FAERS Safety Report 4305558-9 (Version None)
Quarter: 2004Q1

REPORT INFORMATION
  Report Type: 
  Country: None (occurrence: None)
  Receive Date: 20040226
  Receipt Date: 20031125
  Transmission Date: 20041129
  Serious: No
  Sender: FDA-Public Use
  Company Number: US-BRISTOL-MYERS SQUIBB COMPANY-12443693

PATIENT
  Age: 48 Year
  Sex: Female
  Weight: 66 kg

DRUGS (10)
  1. ABILIFY [Suspect]
     Indication: BIPOLAR DISORDER
     Dosage: 1/2 OF A 10 MG TABLET
     Route: 048
     Dates: start: 20031122
  2. DEPAKOTE [Concomitant]
  3. PAXIL [Concomitant]
  4. BUSPAR [Concomitant]
  5. REMERON [Concomitant]
  6. SEROQUEL [Concomitant]
  7. ACCUPRIL [Concomitant]
  8. LOPRESSOR [Concomitant]
  9. NITROGLYCERIN [Concomitant]
  10. SYNTHROID [Concomitant]

REACTIONS (1)
  - NAUSEA [None]
